FAERS Safety Report 6909014-0 (Version None)
Quarter: 2010Q3

REPORT INFORMATION
  Report Type: 
  Country: None (occurrence: None)
  Receive Date: 20100708
  Receipt Date: 20090430
  Transmission Date: 20110219
  Serious: Yes (Other)
  Sender: FDA-Public Use
  Company Number: 2008152149

PATIENT
  Age: 66 Year
  Sex: Male
  Weight: 93 kg

DRUGS (3)
  1. CHANTIX [Suspect]
     Indication: SMOKING CESSATION THERAPY
     Dosage: 1 MG, 2X/DAY
     Dates: start: 20081101, end: 20081101
  2. DETROL LA [Concomitant]
  3. COMMIT [Concomitant]

REACTIONS (3)
  - FRUSTRATION [None]
  - HALLUCINATION [None]
  - MEMORY IMPAIRMENT [None]
